FAERS Safety Report 4410647-4 (Version None)
Quarter: 2004Q3

REPORT INFORMATION
  Report Type: 
  Country: None (occurrence: None)
  Receive Date: 20040728
  Receipt Date: 20040728
  Transmission Date: 20050211
  Serious: No
  Sender: FDA-Public Use
  Company Number: None

PATIENT
  Sex: Male

DRUGS (1)
  1. CORDIS CYPHER STENTS [Suspect]
     Dosage: INPLANTED
     Route: 050
     Dates: start: 20040224

REACTIONS (3)
  - DYSPNOEA [None]
  - HYPERSENSITIVITY [None]
  - POST PROCEDURAL COMPLICATION [None]
